FAERS Safety Report 21957104 (Version 1)
Quarter: 2023Q1

REPORT INFORMATION
  Report Type: Spontaneous
  Country: IT (occurrence: IT)
  Receive Date: 20230206
  Receipt Date: 20230206
  Transmission Date: 20230417
  Serious: Yes (Disabling, Other)
  Sender: FDA-Public Use
  Company Number: IT-JNJFOC-20230207366

PATIENT
  Age: 69 Year
  Sex: Female

DRUGS (1)
  1. YONDELIS [Suspect]
     Active Substance: TRABECTEDIN
     Indication: Serous cystadenocarcinoma ovary
     Route: 042

REACTIONS (4)
  - Injection site thrombosis [Recovered/Resolved]
  - Skin ulcer [Recovered/Resolved]
  - Injection site extravasation [Recovered/Resolved]
  - Off label use [Unknown]
